FAERS Safety Report 7960989-0 (Version None)
Quarter: 2011Q4

REPORT INFORMATION
  Report Type: 
  Country: None (occurrence: None)
  Receive Date: 20111207
  Receipt Date: 20111130
  Transmission Date: 20120403
  Serious: No
  Sender: FDA-Public Use
  Company Number: US-PFIZER INC-2011293372

PATIENT
  Sex: Female

DRUGS (1)
  1. TOVIAZ [Suspect]
     Dosage: 8 MG, UNK
     Dates: start: 20111129

REACTIONS (7)
  - URTICARIA [None]
  - DYSPNOEA [None]
  - BLADDER PAIN [None]
  - EYE PAIN [None]
  - EYE SWELLING [None]
  - OEDEMA PERIPHERAL [None]
  - NAUSEA [None]
